FAERS Safety Report 19211428 (Version 4)
Quarter: 2021Q2

REPORT INFORMATION
  Report Type: Report from Study
  Country: CA (occurrence: CA)
  Receive Date: 20210504
  Receipt Date: 20210618
  Transmission Date: 20210717
  Serious: Yes (Other)
  Sender: FDA-Public Use
  Company Number: CA-JNJFOC-20210460112

PATIENT
  Age: 16 Year
  Sex: Female
  Weight: 62 kg

DRUGS (2)
  1. REMICADE [Suspect]
     Active Substance: INFLIXIMAB
     Indication: CROHN^S DISEASE
     Dosage: UNIT DOSE ALSO GIVEN AS 5MG/KG.?INFUSION DATE: 08?AUG?2020
     Route: 042
     Dates: start: 20200806, end: 20210429
  2. REMICADE [Suspect]
     Active Substance: INFLIXIMAB
     Route: 042
     Dates: start: 20210513

REACTIONS (6)
  - Product use issue [Unknown]
  - Crohn^s disease [Not Recovered/Not Resolved]
  - Drug specific antibody present [Recovered/Resolved]
  - Therapeutic response decreased [Unknown]
  - Drug level below therapeutic [Unknown]
  - Off label use [Unknown]

NARRATIVE: CASE EVENT DATE: 20201221
